FAERS Safety Report 12502113 (Version 2)
Quarter: 2016Q3

REPORT INFORMATION
  Report Type: Report from Study
  Country: US (occurrence: US)
  Receive Date: 20160627
  Receipt Date: 20160825
  Transmission Date: 20161109
  Serious: Yes (Hospitalization, Other)
  Sender: FDA-Public Use
  Company Number: US-ABBVIE-16K-163-1655464-00

PATIENT
  Age: 44 Year
  Sex: Female

DRUGS (2)
  1. HUMIRA [Suspect]
     Active Substance: ADALIMUMAB
     Indication: CROHN^S DISEASE
     Route: 058
     Dates: start: 2015, end: 201602
  2. HUMIRA [Suspect]
     Active Substance: ADALIMUMAB
     Route: 058
     Dates: start: 201603

REACTIONS (5)
  - Bile duct stone [Recovering/Resolving]
  - Yellow skin [Recovered/Resolved]
  - Hepatic infection [Recovered/Resolved]
  - Colitis ischaemic [Recovered/Resolved with Sequelae]
  - Chromaturia [Recovered/Resolved]

NARRATIVE: CASE EVENT DATE: 20160301
